FAERS Safety Report 7719056-3 (Version None)
Quarter: 2011Q3

REPORT INFORMATION
  Report Type: 
  Country: None (occurrence: None)
  Receive Date: 20110830
  Receipt Date: 20110825
  Transmission Date: 20111222
  Serious: Yes (Disabling)
  Sender: FDA-Public Use
  Company Number: US-MERCK-1106USA01809

PATIENT
  Age: 4 Year
  Sex: Male
  Weight: 24 kg

DRUGS (4)
  1. SINGULAIR [Suspect]
     Indication: ASTHMA
     Route: 048
     Dates: start: 20110510, end: 20110520
  2. QVAR 40 [Concomitant]
     Indication: ASTHMA
     Route: 048
     Dates: start: 20070701
  3. ZYRTEC [Concomitant]
     Indication: HYPERSENSITIVITY
     Route: 065
  4. SINGULAIR [Suspect]
     Indication: HYPERSENSITIVITY
     Route: 048
     Dates: start: 20110510, end: 20110520

REACTIONS (11)
  - PERSONALITY CHANGE [None]
  - NIGHTMARE [None]
  - AGGRESSION [None]
  - HALLUCINATION, AUDITORY [None]
  - MENTAL DISORDER [None]
  - IRRITABILITY [None]
  - HALLUCINATION, VISUAL [None]
  - PHARYNGITIS STREPTOCOCCAL [None]
  - ANGER [None]
  - CRYING [None]
  - VIOLENCE-RELATED SYMPTOM [None]
